FAERS Safety Report 6294878-7 (Version None)
Quarter: 2009Q3

REPORT INFORMATION
  Report Type: 
  Country: None (occurrence: None)
  Receive Date: 20090803
  Receipt Date: 20090725
  Transmission Date: 20100115
  Serious: Yes (Death, Hospitalization, Other)
  Sender: FDA-Public Use
  Company Number: IN-ELI_LILLY_AND_COMPANY-IN200907005678

PATIENT
  Age: 71 Year
  Sex: Female

DRUGS (3)
  1. XIGRIS [Suspect]
     Indication: MULTI-ORGAN FAILURE
     Dosage: UNK, UNKNOWN
     Route: 042
     Dates: start: 20090723, end: 20090724
  2. XIGRIS [Suspect]
     Dosage: UNK, UNKNOWN
     Route: 042
     Dates: start: 20090724, end: 20090725
  3. DOPAMINE HCL [Concomitant]
     Indication: RENAL DISORDER
     Dosage: UNK, UNKNOWN

REACTIONS (2)
  - GASTROINTESTINAL HAEMORRHAGE [None]
  - HYPOTENSION [None]
